FAERS Safety Report 4952908-6 (Version None)
Quarter: 2006Q1

REPORT INFORMATION
  Report Type: 
  Country: None (occurrence: None)
  Receive Date: 20060320
  Receipt Date: 20060307
  Transmission Date: 20060701
  Serious: Yes (Other)
  Sender: FDA-Public Use
  Company Number: 2005116706

PATIENT
  Age: 72 Year
  Sex: Female
  Weight: 54.4316 kg

DRUGS (2)
  1. ZOLOFT [Suspect]
     Indication: MOOD DISORDER DUE TO A GENERAL MEDICAL CONDITION
     Dosage: 50 MG (50 MG 1 IN 1 D)
     Dates: start: 20040601
  2. FOSAMAX [Concomitant]

REACTIONS (2)
  - CEREBRAL HAEMORRHAGE [None]
  - GAMMOPATHY [None]
